FAERS Safety Report 9215274 (Version 1)
Quarter: 2013Q2

REPORT INFORMATION
  Report Type: Spontaneous
  Country: ES (occurrence: ES)
  Receive Date: 20130405
  Receipt Date: 20130405
  Transmission Date: 20140414
  Serious: Yes (Other)
  Sender: FDA-Public Use
  Company Number: ES-PFIZER INC-2013104735

PATIENT
  Age: 33 Year
  Sex: Male

DRUGS (3)
  1. CARDURAN NEO [Suspect]
     Indication: HYPERTENSION
     Dosage: 16 MG, DAILY
     Route: 048
     Dates: start: 20120507, end: 20120810
  2. MYFORTIC [Suspect]
     Indication: RENAL TRANSPLANT
     Dosage: 1440 MG, DAILY
     Route: 048
     Dates: start: 20120626, end: 20120809
  3. ADVAGRAF [Concomitant]
     Indication: RENAL TRANSPLANT
     Dosage: 14 MG, DAILY
     Route: 048
     Dates: start: 20120626

REACTIONS (6)
  - Cholestasis [Recovered/Resolved]
  - Alanine aminotransferase increased [Recovered/Resolved]
  - Gamma-glutamyltransferase increased [Recovered/Resolved]
  - Aspartate aminotransferase increased [Recovered/Resolved]
  - Blood alkaline phosphatase increased [Recovering/Resolving]
  - Drug level below therapeutic [Recovered/Resolved]
